FAERS Safety Report 9376897 (Version 1)
Quarter: 2013Q2

REPORT INFORMATION
  Report Type: Spontaneous
  Country: US (occurrence: None)
  Receive Date: 20130628
  Receipt Date: 20130628
  Transmission Date: 20140414
  Serious: Yes (Hospitalization)
  Sender: FDA-Public Use
  Company Number: None

PATIENT
  Age: 30 Month
  Sex: Female
  Weight: 8.9 kg

DRUGS (5)
  1. CISPLATIN [Suspect]
  2. CYCLOPHOSPHAMIDE [Suspect]
  3. ETOPOSIDE (VP-16) [Suspect]
  4. METHOTREXATE [Suspect]
  5. VINCRISTINE SULFATE [Suspect]

REACTIONS (3)
  - Respiratory failure [None]
  - Bacterial sepsis [None]
  - Bone marrow failure [None]
